FAERS Safety Report 11094378 (Version 1)
Quarter: 2015Q2

REPORT INFORMATION
  Report Type: Spontaneous
  Country: US (occurrence: US)
  Receive Date: 20150506
  Receipt Date: 20150506
  Transmission Date: 20150821
  Serious: No
  Sender: FDA-Public Use
  Company Number: US-GLAXOSMITHKLINE-US2015GSK059849

PATIENT
  Age: 60 Year
  Sex: Female

DRUGS (1)
  1. SUMATRIPTAN SUCCINATE NASAL SPRAY [Suspect]
     Active Substance: SUMATRIPTAN SUCCINATE
     Indication: PRODUCT USED FOR UNKNOWN INDICATION
     Dosage: UNK
     Dates: start: 20150421

REACTIONS (7)
  - Lip swelling [Unknown]
  - Product quality issue [Unknown]
  - Swollen tongue [Unknown]
  - Dizziness [Unknown]
  - Ocular hyperaemia [Unknown]
  - Somnolence [Unknown]
  - Headache [Unknown]

NARRATIVE: CASE EVENT DATE: 20150422
